FAERS Safety Report 22050833 (Version 2)
Quarter: 2023Q2

REPORT INFORMATION
  Report Type: Spontaneous
  Country: US (occurrence: US)
  Receive Date: 20230301
  Receipt Date: 20230519
  Transmission Date: 20230721
  Serious: No
  Sender: FDA-Public Use
  Company Number: US-BRISTOL-MYERS SQUIBB COMPANY-2023-029918

PATIENT
  Age: 70 Year
  Sex: Male
  Weight: 88.9 kg

DRUGS (1)
  1. REVLIMID [Suspect]
     Active Substance: LENALIDOMIDE
     Indication: Plasma cell myeloma
     Dosage: FREQUENCY: 3W, 1W OFF
     Route: 048
     Dates: start: 20221201

REACTIONS (5)
  - Pain [Unknown]
  - Abdominal distension [Unknown]
  - Constipation [Unknown]
  - Insomnia [Unknown]
  - Treatment noncompliance [Unknown]
